FAERS Safety Report 15750082 (Version 1)
Quarter: 2018Q4

REPORT INFORMATION
  Report Type: Spontaneous
  Country: US (occurrence: US)
  Receive Date: 20181205
  Receipt Date: 20181205
  Transmission Date: 20190205
  Serious: No
  Sender: FDA-Public Use
  Company Number: None

PATIENT
  Age: 8 Year
  Sex: Male
  Weight: 39.6 kg

DRUGS (1)
  1. SINGULAIR [Suspect]
     Active Substance: MONTELUKAST SODIUM
     Indication: ASTHMA
     Route: 048
     Dates: start: 20171101, end: 20171205

REACTIONS (8)
  - Pain in extremity [None]
  - Nightmare [None]
  - Restlessness [None]
  - Anger [None]
  - Abnormal behaviour [None]
  - Depression [None]
  - Suicidal ideation [None]
  - Disturbance in attention [None]

NARRATIVE: CASE EVENT DATE: 20171101
